FAERS Safety Report 5146783-7 (Version None)
Quarter: 2006Q4

REPORT INFORMATION
  Report Type: 
  Country: None (occurrence: None)
  Receive Date: 20061107
  Receipt Date: 20061107
  Transmission Date: 20070319
  Serious: Yes (Other)
  Sender: FDA-Public Use
  Company Number: None

PATIENT
  Sex: Female
  Weight: 64.4108 kg

DRUGS (1)
  1. METRONIDAZOLE [Suspect]
     Indication: GASTRIC INFECTION
     Dosage: 1 TABLET 3 TIMES A DAY PO
     Route: 048
     Dates: start: 20061019, end: 20061028

REACTIONS (1)
  - DIPLOPIA [None]
